FAERS Safety Report 18410130 (Version 1)
Quarter: 2020Q4

REPORT INFORMATION
  Report Type: Spontaneous
  Country: US (occurrence: US)
  Receive Date: 20201021
  Receipt Date: 20201021
  Transmission Date: 20210114
  Serious: No
  Sender: FDA-Public Use
  Company Number: US-MYLANLABS-2020M1087232

PATIENT
  Sex: Female

DRUGS (1)
  1. GLYCERYL TRINITRATE [Suspect]
     Active Substance: NITROGLYCERIN
     Indication: ANGINA PECTORIS
     Dosage: 0.2 MILLIGRAM, QD
     Route: 062

REACTIONS (5)
  - Application site pruritus [Unknown]
  - Application site erythema [Unknown]
  - Application site discomfort [Unknown]
  - Product substitution issue [Unknown]
  - Application site rash [Unknown]
